FAERS Safety Report 22357833 (Version 1)
Quarter: 2023Q2

REPORT INFORMATION
  Report Type: Report from Study
  Country: US (occurrence: None)
  Receive Date: 20230524
  Receipt Date: 20230524
  Transmission Date: 20230721
  Serious: Yes (Hospitalization, Other)
  Sender: FDA-Public Use
  Company Number: US-ROCHE-3353429

PATIENT
  Sex: Male

DRUGS (1)
  1. TOCILIZUMAB [Suspect]
     Active Substance: TOCILIZUMAB
     Indication: Malignant melanoma
     Dosage: RECEIVED 6 INFUSIONS OF TOCILIZUMAB 8 MG/KG INTRAVENOUSLY EVERY 4 WEEKS
     Route: 065

REACTIONS (5)
  - Diarrhoea [Unknown]
  - Nausea [Unknown]
  - Dehydration [Unknown]
  - Cerebrovascular accident [Unknown]
  - Enterocolitis [Unknown]

NARRATIVE: CASE EVENT DATE: 20220811
